FAERS Safety Report 7432722-2 (Version None)
Quarter: 2011Q2

REPORT INFORMATION
  Report Type: 
  Country: None (occurrence: None)
  Receive Date: 20110422
  Receipt Date: 20110419
  Transmission Date: 20111010
  Serious: Yes (Hospitalization)
  Sender: FDA-Public Use
  Company Number: A0898933A

PATIENT
  Age: 56 Year
  Sex: Male

DRUGS (3)
  1. METFORMIN [Concomitant]
  2. GLYBURIDE [Concomitant]
  3. ROSIGLITAZONE MALEATE [Suspect]
     Dosage: 4MG PER DAY
     Route: 048
     Dates: start: 20040412, end: 20041227

REACTIONS (3)
  - TRANSIENT ISCHAEMIC ATTACK [None]
  - DIZZINESS [None]
  - ASTHENIA [None]
